FAERS Safety Report 20802515 (Version 1)
Quarter: 2022Q2

REPORT INFORMATION
  Report Type: Spontaneous
  Country: US (occurrence: None)
  Receive Date: 20220508
  Receipt Date: 20220508
  Transmission Date: 20220721
  Serious: Yes (Other)
  Sender: FDA-Public Use
  Company Number: None

PATIENT
  Age: 67 Year
  Sex: Female

DRUGS (7)
  1. PREDNISOLONE [Suspect]
     Active Substance: PREDNISOLONE
     Indication: Cataract operation
  2. DIFLUPREDNATE [Suspect]
     Active Substance: DIFLUPREDNATE
  3. SYNTHROID [Concomitant]
     Active Substance: LEVOTHYROXINE SODIUM
  4. GABAPENTIN [Concomitant]
     Active Substance: GABAPENTIN
  5. TIZANIDINE [Concomitant]
     Active Substance: TIZANIDINE
  6. MUCINEX [Concomitant]
     Active Substance: GUAIFENESIN
  7. VITAMIN D3 [Concomitant]
     Active Substance: CHOLECALCIFEROL

REACTIONS (6)
  - Eye pain [None]
  - Vision blurred [None]
  - Foreign body sensation in eyes [None]
  - Photophobia [None]
  - Eye irritation [None]
  - Suicidal ideation [None]

NARRATIVE: CASE EVENT DATE: 20220419
